FAERS Safety Report 6203709-2 (Version None)
Quarter: 2009Q2

REPORT INFORMATION
  Report Type: 
  Country: None (occurrence: None)
  Receive Date: 20090527
  Receipt Date: 20090519
  Transmission Date: 20091009
  Serious: Yes (Hospitalization)
  Sender: FDA-Public Use
  Company Number: US-AVENTIS-200911984US

PATIENT
  Sex: Male
  Weight: 67.3 kg

DRUGS (12)
  1. LANTUS [Suspect]
     Route: 058
     Dates: start: 19950101
  2. OPTICLIK (INSULIN INJECTION PEN) [Suspect]
     Dates: start: 20050101
  3. METOPROLOL [Concomitant]
     Indication: BLOOD PRESSURE
  4. THIAMINE HCL [Concomitant]
     Dosage: DOSE: 1 TAB
     Route: 048
  5. FOLIC ACID [Concomitant]
     Dosage: DOSE: 1 TAB
     Route: 048
  6. PRANDIN                            /01393601/ [Concomitant]
  7. NEXIUM [Concomitant]
     Dosage: DOSE: UNK
  8. SUCRALFATE [Concomitant]
  9. SIMVASTAN [Concomitant]
     Dosage: DOSE: UNK
  10. AGGRENOX [Concomitant]
     Indication: THROMBOSIS PROPHYLAXIS
     Dosage: DOSE: 1 TAB OF 200/25
  11. FUROSEMIDE [Concomitant]
  12. MULTI-VITAMINS [Concomitant]
     Dosage: DOSE: 1 TAB

REACTIONS (3)
  - BLOOD GLUCOSE INCREASED [None]
  - LIMB INJURY [None]
  - PNEUMONIA [None]
